FAERS Safety Report 21438430 (Version 1)
Quarter: 2022Q4

REPORT INFORMATION
  Report Type: Spontaneous
  Country: JP (occurrence: JP)
  Receive Date: 20221011
  Receipt Date: 20221011
  Transmission Date: 20230113
  Serious: Yes (Other)
  Sender: FDA-Public Use
  Company Number: JP-NOVARTISPH-NVSJ2022JP098434

PATIENT

DRUGS (1)
  1. VOTRIENT [Suspect]
     Active Substance: PAZOPANIB HYDROCHLORIDE
     Indication: Liposarcoma
     Dosage: 800 MG
     Route: 048

REACTIONS (4)
  - Liposarcoma [Unknown]
  - Malignant neoplasm progression [Unknown]
  - Ureteric obstruction [Unknown]
  - Renal impairment [Unknown]
